FAERS Safety Report 7296776-9 (Version None)
Quarter: 2011Q1

REPORT INFORMATION
  Report Type: 
  Country: None (occurrence: None)
  Receive Date: 20110216
  Receipt Date: 20110207
  Transmission Date: 20110831
  Serious: Yes (Hospitalization)
  Sender: FDA-Public Use
  Company Number: B0695647A

PATIENT
  Sex: Female

DRUGS (2)
  1. LAPATINIB [Suspect]
     Indication: BREAST NEOPLASM
     Dosage: 1500MG PER DAY
     Route: 065
     Dates: start: 20100602
  2. CAELYX [Suspect]
     Indication: BREAST NEOPLASM
     Route: 065
     Dates: start: 20100602, end: 20101102

REACTIONS (1)
  - GENERAL PHYSICAL HEALTH DETERIORATION [None]
